FAERS Safety Report 10003891 (Version 1)
Quarter: 2014Q1

REPORT INFORMATION
  Report Type: Spontaneous
  Country: US (occurrence: US)
  Receive Date: 20140312
  Receipt Date: 20140312
  Transmission Date: 20141002
  Serious: No
  Sender: FDA-Public Use
  Company Number: US-ABBVIE-13P-163-1098903-00

PATIENT
  Age: 68 Year
  Sex: Female

DRUGS (1)
  1. DEPAKOTE [Suspect]
     Indication: MIGRAINE PROPHYLAXIS

REACTIONS (1)
  - Drug ineffective [Unknown]
